FAERS Safety Report 6917120-X (Version None)
Quarter: 2010Q3

REPORT INFORMATION
  Report Type: 
  Country: None (occurrence: None)
  Receive Date: 20100810
  Receipt Date: 20100729
  Transmission Date: 20110219
  Serious: Yes (Other)
  Sender: FDA-Public Use
  Company Number: B0669065A

PATIENT
  Sex: Male

DRUGS (1)
  1. CLAVAMOX [Suspect]
     Route: 048
     Dates: start: 20070401

REACTIONS (2)
  - APHTHOUS STOMATITIS [None]
  - BLISTER [None]
